FAERS Safety Report 7734841-X (Version None)
Quarter: 2011Q3

REPORT INFORMATION
  Report Type: 
  Country: None (occurrence: None)
  Receive Date: 20110907
  Receipt Date: 20110806
  Transmission Date: 20111222
  Serious: No
  Sender: FDA-Public Use
  Company Number: US-BAYER-2011-072144

PATIENT

DRUGS (2)
  1. ROBITUSSIN [DEXTROMET HBR,GUAIF,PSEUDOEPH HCL] [Concomitant]
  2. ALEVE (CAPLET) [Suspect]
     Indication: PRODUCT USED FOR UNKNOWN INDICATION
     Route: 048

REACTIONS (2)
  - THIRST [None]
  - PALPITATIONS [None]
